FAERS Safety Report 9254756 (Version 1)
Quarter: 2013Q2

REPORT INFORMATION
  Report Type: Spontaneous
  Country: FR (occurrence: FR)
  Receive Date: 20130425
  Receipt Date: 20130425
  Transmission Date: 20140414
  Serious: Yes (Other)
  Sender: FDA-Public Use
  Company Number: FR-UCBSA-083971

PATIENT
  Age: 67 Year
  Sex: Female

DRUGS (17)
  1. NEUPRO [Suspect]
     Indication: PARKINSON^S DISEASE
     Route: 062
     Dates: start: 20121212
  2. NEUPRO [Suspect]
     Indication: PARKINSON^S DISEASE
     Route: 062
     Dates: end: 201303
  3. MYOLASTAN [Suspect]
     Indication: MYALGIA
     Route: 048
     Dates: start: 201302, end: 201302
  4. TRIATEC [Concomitant]
     Route: 048
  5. PLAVIX [Concomitant]
     Route: 048
  6. NOVORAPID [Concomitant]
     Route: 058
  7. LANTUS SOLOSTAR [Concomitant]
     Route: 058
  8. NICORANDIL [Concomitant]
     Route: 048
  9. CRESTOR [Concomitant]
     Route: 048
  10. SPIRONOLACTONE [Concomitant]
     Route: 048
  11. OGASTORO [Concomitant]
     Route: 048
  12. LEXOMIL [Concomitant]
     Route: 048
  13. FORLAX [Concomitant]
     Route: 048
  14. LEVOTHYROX [Concomitant]
     Route: 048
  15. ZOLPIDEM [Concomitant]
     Route: 048
  16. DIASEPTIL [Concomitant]
     Route: 003
  17. ROZACREME [Concomitant]
     Route: 003

REACTIONS (2)
  - Sciatica [Unknown]
  - Rash maculo-papular [Unknown]
